FAERS Safety Report 19213002 (Version 1)
Quarter: 2021Q2

REPORT INFORMATION
  Report Type: Other
  Country: US (occurrence: US)
  Receive Date: 20210504
  Receipt Date: 20210504
  Transmission Date: 20210717
  Serious: No
  Sender: FDA-Public Use
  Company Number: US-ROCHE-2566235

PATIENT
  Age: 69 Year
  Sex: Female

DRUGS (7)
  1. AVASTIN [Suspect]
     Active Substance: BEVACIZUMAB
     Indication: METASTATIC UTERINE CANCER
     Route: 042
     Dates: start: 201901
  2. AVASTIN [Suspect]
     Active Substance: BEVACIZUMAB
     Dosage: 1 CYCLE
     Route: 042
     Dates: start: 201905
  3. DOXIL [Suspect]
     Active Substance: DOXORUBICIN HYDROCHLORIDE
     Indication: METASTATIC UTERINE CANCER
     Route: 065
  4. ABRAXANE [Concomitant]
     Active Substance: PACLITAXEL
     Indication: METASTATIC UTERINE CANCER
  5. AVASTIN [Suspect]
     Active Substance: BEVACIZUMAB
     Route: 042
  6. CYCLOPHOSPHAMIDE. [Concomitant]
     Active Substance: CYCLOPHOSPHAMIDE
     Indication: METASTATIC UTERINE CANCER
     Dosage: 28 DAY CYCLE
  7. IXEMPRA [Concomitant]
     Active Substance: IXABEPILONE
     Indication: METASTATIC UTERINE CANCER

REACTIONS (3)
  - Asthenia [Unknown]
  - Nausea [Unknown]
  - Fatigue [Unknown]
